FAERS Safety Report 12836444 (Version 1)
Quarter: 2016Q4

REPORT INFORMATION
  Report Type: Spontaneous
  Country: US (occurrence: US)
  Receive Date: 20161011
  Receipt Date: 20161011
  Transmission Date: 20170207
  Serious: No
  Sender: FDA-Public Use
  Company Number: US-DOLLAR GENERAL PREMIER BRANDS OF AMERICA INC.-1058213

PATIENT
  Sex: Female

DRUGS (2)
  1. ANBESOL MAXIMUM STRENGTH LIQUID [Suspect]
     Active Substance: BENZOCAINE
     Route: 061
  2. LIQUID CORN AND CALLUS REMOVER [Suspect]
     Active Substance: SALICYLIC ACID
     Indication: SKIN LESION EXCISION
     Route: 003

REACTIONS (1)
  - Accidental exposure to product [Recovered/Resolved]

NARRATIVE: CASE EVENT DATE: 20160822
